FAERS Safety Report 6888968-5 (Version None)
Quarter: 2010Q3

REPORT INFORMATION
  Report Type: 
  Country: None (occurrence: None)
  Receive Date: 20100730
  Receipt Date: 20071205
  Transmission Date: 20110219
  Serious: No
  Sender: FDA-Public Use
  Company Number: US-PFIZER INC-2007102124

PATIENT
  Sex: Female
  Weight: 56.8 kg

DRUGS (5)
  1. LIPITOR [Suspect]
     Indication: CORONARY ARTERY OCCLUSION
     Dates: start: 20071101
  2. SINEMET [Concomitant]
  3. KLONOPIN [Concomitant]
  4. VICODIN [Concomitant]
  5. CLONAZEPAM [Concomitant]

REACTIONS (2)
  - SOMNOLENCE [None]
  - SPEECH DISORDER [None]
